FAERS Safety Report 25974564 (Version 1)
Quarter: 2025Q4

REPORT INFORMATION
  Report Type: Report from Study
  Country: GB (occurrence: None)
  Receive Date: 20251029
  Receipt Date: 20251029
  Transmission Date: 20260118
  Serious: Yes (Hospitalization)
  Sender: UCB
  Company Number: GB-UCBSA-2025066853

PATIENT
  Age: 40 Year

DRUGS (1)
  1. BIMEKIZUMAB [Suspect]
     Active Substance: BIMEKIZUMAB
     Indication: Axial spondyloarthritis
     Dosage: 160 MILLIGRAM, EV 4 WEEKS

REACTIONS (3)
  - Arthropod bite [Unknown]
  - Sepsis [Unknown]
  - Decreased immune responsiveness [Unknown]
